FAERS Safety Report 10815004 (Version 2)
Quarter: 2015Q3

REPORT INFORMATION
  Report Type: Report from Study
  Country: US (occurrence: US)
  Receive Date: 20150218
  Receipt Date: 20150930
  Transmission Date: 20151125
  Serious: Yes (Other)
  Sender: FDA-Public Use
  Company Number: US-AMGEN-USASL2015014034

PATIENT
  Age: 62 Year
  Sex: Female

DRUGS (1)
  1. ENBREL [Suspect]
     Active Substance: ETANERCEPT
     Indication: RHEUMATOID ARTHRITIS
     Dosage: 50 MG, QWK
     Route: 058
     Dates: start: 20100508

REACTIONS (5)
  - Upper respiratory tract infection [Unknown]
  - Cystitis [Unknown]
  - Rheumatoid arthritis [Not Recovered/Not Resolved]
  - Hepatic enzyme abnormal [Unknown]
  - Injection site erythema [Unknown]

NARRATIVE: CASE EVENT DATE: 2015
